FAERS Safety Report 5268500-2 (Version None)
Quarter: 2007Q1

REPORT INFORMATION
  Report Type: 
  Country: None (occurrence: None)
  Receive Date: 20061213
  Receipt Date: 20040803
  Transmission Date: 20070707
  Serious: Yes (Other)
  Sender: FDA-Public Use
  Company Number: 2004UW16457

PATIENT
  Age: 58 Year
  Sex: Male
  Weight: 99.7913 kg

DRUGS (9)
  1. IRESSA [Suspect]
     Indication: NON-SMALL CELL LUNG CANCER
     Dosage: 250 MG PO
     Route: 048
     Dates: start: 20040701
  2. GLUCOPHAGE [Concomitant]
  3. LIPITOR [Concomitant]
  4. ACETAMINOPHEN AND OXYCODONE HCL [Concomitant]
  5. COMPAZINE [Concomitant]
  6. NEURONTIN [Concomitant]
  7. ATROVENT [Concomitant]
  8. BENTYL [Concomitant]
  9. HYCODAN [Concomitant]

REACTIONS (1)
  - COUGH [None]
